FAERS Safety Report 14737622 (Version 1)
Quarter: 2018Q2

REPORT INFORMATION
  Report Type: Spontaneous
  Country: CN (occurrence: CN)
  Receive Date: 20180409
  Receipt Date: 20180409
  Transmission Date: 20180711
  Serious: Yes (Hospitalization)
  Sender: FDA-Public Use
  Company Number: CN-FRESENIUS KABI-FK201804111

PATIENT
  Age: 42 Year
  Sex: Female

DRUGS (1)
  1. PROPOFOL (MANUFACTURER UNKNOWN) [Suspect]
     Active Substance: PROPOFOL
     Indication: ANAESTHESIA
     Route: 065

REACTIONS (3)
  - Hypersensitivity [Recovered/Resolved]
  - Arteriospasm coronary [Recovered/Resolved]
  - Acute coronary syndrome [Recovered/Resolved]
